FAERS Safety Report 8497922-1 (Version None)
Quarter: 2012Q3

REPORT INFORMATION
  Report Type: 
  Country: None (occurrence: None)
  Receive Date: 20120709
  Receipt Date: 20120615
  Transmission Date: 20120928
  Serious: No
  Sender: FDA-Public Use
  Company Number: US-AMGEN-USASP2012037667

PATIENT
  Sex: Female

DRUGS (2)
  1. ENBREL [Suspect]
     Indication: PRODUCT USED FOR UNKNOWN INDICATION
     Dosage: 50 MG, QWK
     Dates: start: 20101101
  2. METHOTREXATE [Concomitant]
     Dosage: UNK

REACTIONS (3)
  - FORMICATION [None]
  - PRURITUS [None]
  - PAIN OF SKIN [None]
